FAERS Safety Report 7393482-7 (Version None)
Quarter: 2011Q2

REPORT INFORMATION
  Report Type: 
  Country: None (occurrence: None)
  Receive Date: 20110405
  Receipt Date: 20110204
  Transmission Date: 20111010
  Serious: Yes (Other)
  Sender: FDA-Public Use
  Company Number: US-BAYER-201028987NA

PATIENT
  Sex: Female
  Weight: 58.957 kg

DRUGS (36)
  1. PROMETHAZINE [Concomitant]
     Indication: PROPHYLAXIS OF NAUSEA AND VOMITING
     Dosage: 12.5 MG, PRN
     Route: 048
     Dates: start: 20080115, end: 20080116
  2. AMBIEN [Concomitant]
     Dosage: 10 MG, UNK
     Dates: start: 20080118
  3. I.V. SOLUTIONS [Concomitant]
  4. PHENAZOPYRIDINE HCL TAB [Concomitant]
     Indication: URINARY TRACT INFECTION
  5. VALIUM [Concomitant]
     Indication: ANXIETY
  6. OCELLA [Suspect]
     Indication: ORAL CONTRACEPTION
     Dosage: UNK UNK, QD
     Dates: start: 20010101, end: 20080401
  7. LIBRAX [Concomitant]
     Dosage: 2.5 MG, QID
     Route: 048
     Dates: start: 20071206
  8. NAPROXEN [Concomitant]
     Dosage: 500 MG, UNK
     Route: 048
     Dates: start: 20071227
  9. HYDROCODONE BITARTRATE AND ACETAMINOPHEN [Concomitant]
     Indication: BACK PAIN
     Dosage: UNK
     Route: 048
     Dates: start: 20071201, end: 20090101
  10. HYDROCODONE BITARTRATE AND ACETAMINOPHEN [Concomitant]
     Indication: MUSCULOSKELETAL PAIN
  11. AMBIEN [Concomitant]
     Dosage: 10 MG, UNK
     Dates: start: 20071219, end: 20070101
  12. FAMOTIDINE [Concomitant]
  13. MOBIC [Concomitant]
     Indication: PAIN
     Dosage: 15 MG, UNK
     Route: 048
     Dates: start: 20080411
  14. ONDANSETRON [Concomitant]
  15. KETOROLAC [Concomitant]
  16. YAZ [Suspect]
     Indication: ORAL CONTRACEPTION
     Dosage: UNK UNK, QD
     Dates: start: 20010101, end: 20080401
  17. YASMIN [Suspect]
     Indication: ORAL CONTRACEPTION
     Dosage: UNK UNK, QD
     Dates: start: 20010101, end: 20080401
  18. MOTRIN [Concomitant]
     Indication: PAIN
     Dosage: 600 MG, UNK
     Route: 048
     Dates: start: 20080309
  19. AMITRIPTYLINE HCL [Concomitant]
     Indication: ABDOMINAL PAIN UPPER
     Dosage: UNK
     Dates: start: 20071201
  20. PHAZYME [Concomitant]
     Indication: FLATULENCE
     Dosage: UNK
     Dates: start: 20080115
  21. WELLBUTRIN SR [Concomitant]
  22. FLUCONAZOLE [Concomitant]
     Dosage: 150 MG, UNK
     Route: 048
     Dates: start: 20080101, end: 20080101
  23. CIPRO [Concomitant]
     Indication: URINARY TRACT INFECTION
     Dosage: 500 MG, QD
     Route: 048
     Dates: start: 20080118, end: 20080128
  24. CLINDAMYCIN [Concomitant]
     Indication: INFECTION
     Dosage: 300 MG, UNK
     Route: 048
     Dates: start: 20080121, end: 20080128
  25. DICLOFENAC [Concomitant]
     Indication: ARTHRALGIA
     Dosage: UNK UNK, PRN
     Route: 061
     Dates: start: 20080308
  26. ASPIRIN [Concomitant]
     Dosage: 325 MG, QD
     Dates: start: 20080308
  27. MULTI-VITAMIN [Concomitant]
     Dosage: UNK UNK, QD
     Route: 048
     Dates: start: 20080308
  28. ALPRAZOLAM [Concomitant]
     Indication: ANXIETY
     Dosage: 0.5 MG, UNK
     Route: 048
     Dates: start: 20080318
  29. CYCLOBENZAPRINE [Concomitant]
     Indication: MUSCLE RELAXANT THERAPY
     Dosage: 10 MG, UNK
     Route: 048
     Dates: start: 20080411
  30. DICYCLOMINE [Concomitant]
  31. EMETROL [Concomitant]
     Indication: PROPHYLAXIS OF NAUSEA AND VOMITING
     Dosage: UNK
     Dates: start: 20080115
  32. FLAGYL [Concomitant]
     Indication: INFECTION PROPHYLAXIS
     Dosage: 500 MG, TID
     Dates: start: 20080118, end: 20080128
  33. KEFLEX [Concomitant]
     Indication: INFECTION
     Dosage: 250 MG, UNK
     Route: 048
     Dates: start: 20080120
  34. PRILOSEC [Concomitant]
     Indication: ABDOMINAL PAIN UPPER
     Dosage: UNK
     Dates: start: 20071201
  35. DIFLUCAN [Concomitant]
     Dosage: 150 MG, QD
     Route: 048
     Dates: start: 20071206
  36. AMBIEN [Concomitant]
     Indication: INSOMNIA
     Dosage: 10 MG, UNK
     Dates: start: 20030101, end: 20070101

REACTIONS (21)
  - TENSION HEADACHE [None]
  - LIVEDO RETICULARIS [None]
  - DEEP VEIN THROMBOSIS [None]
  - ALOPECIA [None]
  - INJURY [None]
  - MUSCLE SPASMS [None]
  - HYPOAESTHESIA [None]
  - MOOD ALTERED [None]
  - OEDEMA PERIPHERAL [None]
  - PARAESTHESIA [None]
  - DEPRESSION [None]
  - PERIPHERAL COLDNESS [None]
  - PAIN IN EXTREMITY [None]
  - VEIN DISORDER [None]
  - SKIN DISCOLOURATION [None]
  - CELLULITIS [None]
  - MUSCULOSKELETAL PAIN [None]
  - LIGAMENT SPRAIN [None]
  - MUSCULOSKELETAL DISCOMFORT [None]
  - PHLEBITIS [None]
  - ANXIETY [None]
